FAERS Safety Report 26164602 (Version 1)
Quarter: 2025Q4

REPORT INFORMATION
  Report Type: Spontaneous
  Country: US (occurrence: US)
  Receive Date: 20251216
  Receipt Date: 20251216
  Transmission Date: 20260117
  Serious: No
  Sender: SANOFI AVENTIS
  Company Number: US-SA-2025SA372192

PATIENT
  Sex: Female
  Weight: 56.69 kg

DRUGS (9)
  1. DUPIXENT [Suspect]
     Active Substance: DUPILUMAB
     Indication: Dermatitis atopic
     Dosage: 300 MG, QOW
     Route: 058
  2. CLOBETASOL [Concomitant]
     Active Substance: CLOBETASOL
  3. CLOBETASOL [Concomitant]
     Active Substance: CLOBETASOL
  4. DILTIAZEM [Concomitant]
     Active Substance: DILTIAZEM
  5. DIETARY SUPPLEMENT [Concomitant]
     Active Substance: DIETARY SUPPLEMENT
  6. DEMANNOSE [Concomitant]
     Active Substance: DEMANNOSE
  7. EPLERENONE [Concomitant]
     Active Substance: EPLERENONE
  8. TYLENOL [Concomitant]
     Active Substance: ACETAMINOPHEN
  9. ELIQUIS [Concomitant]
     Active Substance: APIXABAN

REACTIONS (1)
  - Headache [Not Recovered/Not Resolved]
